FAERS Safety Report 10047739 (Version 5)
Quarter: 2014Q2

REPORT INFORMATION
  Report Type: Spontaneous
  Country: US (occurrence: US)
  Receive Date: 20140331
  Receipt Date: 20140508
  Transmission Date: 20141212
  Serious: No
  Sender: FDA-Public Use
  Company Number: US-009507513-1403USA011234

PATIENT
  Age: 71 Year
  Sex: Male

DRUGS (4)
  1. STROMECTOL [Suspect]
     Indication: ACARODERMATITIS
     Dosage: 4 DF, ONCE
     Route: 048
     Dates: start: 201312, end: 201312
  2. STROMECTOL [Suspect]
     Dosage: 4 DF, UNK
     Route: 048
  3. STROMECTOL [Suspect]
     Dosage: 4 DF, ONCE
     Route: 048
  4. STROMECTOL [Suspect]
     Dosage: 4 DF, PRN
     Route: 048

REACTIONS (10)
  - Somatic delusion [Not Recovered/Not Resolved]
  - Somatic delusion [Not Recovered/Not Resolved]
  - Poor personal hygiene [Unknown]
  - Drug administration error [Unknown]
  - Treatment noncompliance [Unknown]
  - Eczema [Unknown]
  - Drug effect incomplete [Not Recovered/Not Resolved]
  - Drug ineffective [Not Recovered/Not Resolved]
  - Off label use [Unknown]
  - Acarodermatitis [Not Recovered/Not Resolved]
